FAERS Safety Report 18626310 (Version 1)
Quarter: 2020Q4

REPORT INFORMATION
  Report Type: Spontaneous
  Country: JP (occurrence: JP)
  Receive Date: 20201217
  Receipt Date: 20201217
  Transmission Date: 20210114
  Serious: Yes (Other)
  Sender: FDA-Public Use
  Company Number: JP-ROCHE-2727755

PATIENT
  Age: 6 Decade
  Sex: Male
  Weight: 92 kg

DRUGS (4)
  1. REMDESIVIR. [Suspect]
     Active Substance: REMDESIVIR
     Indication: COVID-19
     Route: 065
     Dates: start: 20201128
  2. SOLU-MEDROL [Concomitant]
     Active Substance: METHYLPREDNISOLONE SODIUM SUCCINATE
     Indication: COVID-19
     Route: 065
     Dates: start: 20201128, end: 20201130
  3. ACTEMRA [Suspect]
     Active Substance: TOCILIZUMAB
     Indication: COVID-19
     Route: 041
     Dates: start: 20201128
  4. ACTEMRA [Suspect]
     Active Substance: TOCILIZUMAB
     Route: 041
     Dates: start: 20201129, end: 20201129

REACTIONS (5)
  - Blood potassium increased [Unknown]
  - Blood creatine phosphokinase increased [Unknown]
  - Off label use [Unknown]
  - Blood creatinine increased [Unknown]
  - Intentional product use issue [Unknown]

NARRATIVE: CASE EVENT DATE: 20201128
